FAERS Safety Report 20465756 (Version 1)
Quarter: 2022Q1

REPORT INFORMATION
  Report Type: Spontaneous
  Country: JP (occurrence: JP)
  Receive Date: 20220212
  Receipt Date: 20220212
  Transmission Date: 20220423
  Serious: Yes (Hospitalization, Other)
  Sender: FDA-Public Use
  Company Number: JP-KYOWAKIRIN-2021AKK008957

PATIENT
  Age: 55 Year
  Sex: Female

DRUGS (14)
  1. DARBEPOETIN ALFA [Suspect]
     Active Substance: DARBEPOETIN ALFA
     Indication: Nephrogenic anaemia
     Dosage: 180 MICROGRAM, Q2WK
     Route: 065
     Dates: end: 20210426
  2. DARBEPOETIN ALFA [Suspect]
     Active Substance: DARBEPOETIN ALFA
     Dosage: 180 MICROGRAM
     Route: 065
     Dates: start: 2021
  3. DAPRODUSTAT [Suspect]
     Active Substance: DAPRODUSTAT
     Indication: Nephrogenic anaemia
     Dosage: 4 MILLIGRAM
     Route: 048
     Dates: start: 20210426
  4. DAPRODUSTAT [Suspect]
     Active Substance: DAPRODUSTAT
     Dosage: 6 MILLIGRAM
     Route: 048
     Dates: start: 20210519, end: 20210520
  5. EVOCALCET [Concomitant]
     Active Substance: EVOCALCET
     Indication: Hyperparathyroidism secondary
     Dosage: UNK
     Route: 048
     Dates: end: 20210520
  6. MOSAPRIDE [Concomitant]
     Active Substance: MOSAPRIDE
     Indication: Chronic gastritis
     Dosage: UNK
     Route: 048
     Dates: end: 20210520
  7. POTASSIUM CHLORIDE [Concomitant]
     Active Substance: POTASSIUM CHLORIDE
     Indication: Hypokalaemia
     Dosage: UNK
     Route: 048
     Dates: end: 20210520
  8. CABPIRIN [Concomitant]
     Indication: Transient ischaemic attack
     Dosage: UNK
     Route: 048
     Dates: end: 20210520
  9. ALFACALCIDOL [Concomitant]
     Active Substance: ALFACALCIDOL
     Indication: Hyperparathyroidism secondary
     Dosage: UNK
     Route: 048
     Dates: end: 20210520
  10. FOSRENOL [Concomitant]
     Active Substance: LANTHANUM CARBONATE
     Indication: Hyperphosphataemia
     Dosage: UNK
     Route: 048
     Dates: end: 20210520
  11. REMITCH OD [Concomitant]
     Indication: Pruritus
     Dosage: UNK
     Route: 048
     Dates: end: 20210520
  12. AMEZINIUM METILSULFATE [Concomitant]
     Active Substance: AMEZINIUM METILSULFATE
     Indication: Orthostatic hypotension
     Dosage: UNK
     Route: 048
     Dates: end: 20210520
  13. METLIGINE D [Concomitant]
     Indication: Orthostatic hypotension
     Dosage: UNK
     Route: 048
     Dates: end: 20210520
  14. BIOFERMIN [BACILLUS SUBTILIS;ENTEROCOCCUS FAECALIS;LACTOBACILLUS ACIDO [Concomitant]
     Indication: Dysbiosis
     Dosage: UNK
     Route: 048
     Dates: end: 20210520

REACTIONS (4)
  - Cerebral infarction [Recovering/Resolving]
  - Cerebral infarction [Recovered/Resolved with Sequelae]
  - Anaemia [Recovered/Resolved]
  - Haemoglobin decreased [Unknown]

NARRATIVE: CASE EVENT DATE: 20210520
